FAERS Safety Report 16941459 (Version 1)
Quarter: 2019Q4

REPORT INFORMATION
  Report Type: Spontaneous
  Country: LT (occurrence: LT)
  Receive Date: 20191020
  Receipt Date: 20191020
  Transmission Date: 20200122
  Serious: No
  Sender: FDA-Public Use
  Company Number: None

PATIENT
  Age: 17 Year
  Sex: Female
  Weight: 98 kg

DRUGS (3)
  1. MIRZATEN (MIRTAZAPINE) [Suspect]
     Active Substance: MIRTAZAPINE
     Indication: EATING DISORDER
     Dosage: ?          QUANTITY:1 TABLET(S);?
     Route: 048
     Dates: start: 20190520, end: 20190920
  2. MIRZATEN (MIRTAZAPINE) [Suspect]
     Active Substance: MIRTAZAPINE
     Indication: BIPOLAR DISORDER
     Dosage: ?          QUANTITY:1 TABLET(S);?
     Route: 048
     Dates: start: 20190520, end: 20190920
  3. MIRZATEN (MIRTAZAPINE) [Suspect]
     Active Substance: MIRTAZAPINE
     Indication: INSOMNIA
     Dosage: ?          QUANTITY:1 TABLET(S);?
     Route: 048
     Dates: start: 20190520, end: 20190920

REACTIONS (1)
  - Weight increased [None]

NARRATIVE: CASE EVENT DATE: 20190707
